FAERS Safety Report 4558716-2 (Version None)
Quarter: 2005Q1

REPORT INFORMATION
  Report Type: 
  Country: None (occurrence: None)
  Receive Date: 20050119
  Receipt Date: 20041115
  Transmission Date: 20050727
  Serious: Yes (Other)
  Sender: FDA-Public Use
  Company Number: 2004097174

PATIENT
  Age: 51 Year
  Sex: Female
  Weight: 68.9467 kg

DRUGS (4)
  1. CELEBREX [Suspect]
     Indication: PAIN
     Dosage: 200 MG (200 MG, 1 IN 1 D), ORAL
     Route: 048
     Dates: start: 20040201
  2. HYZAAR [Concomitant]
  3. CETIRIZINE HCL [Concomitant]
  4. DILTIAZEM HYDROCHLORIDE [Concomitant]

REACTIONS (4)
  - DRY SKIN [None]
  - MENISCUS OPERATION [None]
  - PRURITUS [None]
  - SCAB [None]
